FAERS Safety Report 12930254 (Version 4)
Quarter: 2017Q1

REPORT INFORMATION
  Report Type: Spontaneous
  Country: US (occurrence: US)
  Receive Date: 20161110
  Receipt Date: 20170111
  Transmission Date: 20170428
  Serious: Yes (Death)
  Sender: FDA-Public Use
  Company Number: US-JNJFOC-20161100857

PATIENT
  Age: 4 Decade
  Sex: Male

DRUGS (2)
  1. DURAGESIC [Suspect]
     Active Substance: FENTANYL
     Indication: PRODUCT USED FOR UNKNOWN INDICATION
     Route: 062
     Dates: start: 201409
  2. FENTANYL. [Suspect]
     Active Substance: FENTANYL
     Indication: PRODUCT USED FOR UNKNOWN INDICATION
     Route: 062
     Dates: start: 201409

REACTIONS (4)
  - Intentional product misuse [Fatal]
  - Analgesic drug level increased [Fatal]
  - Drug ineffective [Unknown]
  - Substance abuse [Fatal]

NARRATIVE: CASE EVENT DATE: 201409
